FAERS Safety Report 8901371 (Version 2)
Quarter: 2012Q4

REPORT INFORMATION
  Report Type: 
  Country: ES (occurrence: ES)
  Receive Date: 20121109
  Receipt Date: 20121122
  Transmission Date: 20130627
  Serious: Yes (Life-Threatening, Hospitalization)
  Sender: FDA-Public Use
  Company Number: ES-GE HEALTHCARE MEDICAL DIAGNOSTICS-E2B_00000002

PATIENT
  Age: 82 Year
  Sex: Male

DRUGS (7)
  1. VISIPAQUE [Suspect]
     Indication: PRODUCT USED FOR UNKNOWN INDICATION
     Dosage: dose not reported
     Route: 042
     Dates: start: 20110923, end: 20110923
  2. VISIPAQUE [Suspect]
     Indication: DIAGNOSTIC PROCEDURE
  3. ENALAPRIL [Interacting]
     Indication: CARDIAC FAILURE
     Route: 048
  4. SEGURIL [Interacting]
     Indication: CARDIAC FAILURE
     Route: 048
  5. DIGOXINA [Concomitant]
     Route: 048
     Dates: start: 201102
  6. ADIRO 100 MG COMPRIMIDOS RECUBIERTOS , 30 COMPRIMIDOS [Concomitant]
     Route: 048
     Dates: start: 201003
  7. BOI-K ASPARTICO COMPRIMIDOS EFERVESCENTES , 20 COMPRIMIDOS [Concomitant]
     Route: 048

REACTIONS (2)
  - Hyperkalaemia [Recovered/Resolved]
  - Renal failure acute [Recovered/Resolved]
